FAERS Safety Report 8816988 (Version 1)
Quarter: 2012Q4

REPORT INFORMATION
  Report Type: 
  Country: US (occurrence: None)
  Receive Date: 20121003
  Receipt Date: 20121003
  Transmission Date: 20130627
  Serious: No
  Sender: FDA-Public Use
  Company Number: None

PATIENT
  Age: 52 Year
  Sex: Male

DRUGS (1)
  1. TASIGNA [Suspect]
     Dosage: 200 MG CAPSULE  200 MG PO  TAKE 2 CAPSULES BY MOUTH TWICE DAILY
     Route: 048
     Dates: start: 20120413

REACTIONS (1)
  - Intercepted drug dispensing error [None]
